FAERS Safety Report 6895834-8 (Version None)
Quarter: 2010Q3

REPORT INFORMATION
  Report Type: 
  Country: None (occurrence: None)
  Receive Date: 20100802
  Receipt Date: 20100721
  Transmission Date: 20110219
  Serious: Yes (Other)
  Sender: FDA-Public Use
  Company Number: US-PFIZER INC-2010092120

PATIENT
  Sex: Female

DRUGS (1)
  1. BEXTRA [Suspect]
     Indication: ARTHROPATHY
     Dosage: 20 MG, DAILY
     Dates: start: 20040101

REACTIONS (2)
  - BONE DISORDER [None]
  - CORONARY ARTERIAL STENT INSERTION [None]
